FAERS Safety Report 4882371-5 (Version None)
Quarter: 2005Q4

REPORT INFORMATION
  Report Type: 
  Country: None (occurrence: None)
  Receive Date: 20051201
  Receipt Date: 20050726
  Transmission Date: 20060501
  Serious: No
  Sender: FDA-Public Use
  Company Number: 2005PV000601

PATIENT
  Age: 52 Year
  Sex: Female
  Weight: 122.9248 kg

DRUGS (8)
  1. BYETTA [Suspect]
     Indication: DIABETES MELLITUS NON-INSULIN-DEPENDENT
     Dosage: 5 MCG
     Dates: start: 20050720
  2. ASPIRIN [Concomitant]
  3. ZOCOR [Concomitant]
  4. METANX [Concomitant]
  5. LASIX [Concomitant]
  6. PREVACID [Concomitant]
  7. VITAMIN E [Concomitant]
  8. ASCORBIC ACID [Concomitant]

REACTIONS (6)
  - BLOOD GLUCOSE DECREASED [None]
  - COLD SWEAT [None]
  - HANGOVER [None]
  - HYPERHIDROSIS [None]
  - THERAPEUTIC RESPONSE UNEXPECTED [None]
  - TREMOR [None]
